FAERS Safety Report 5016445-5 (Version None)
Quarter: 2006Q2

REPORT INFORMATION
  Report Type: 
  Country: None (occurrence: None)
  Receive Date: 20060531
  Receipt Date: 20060531
  Transmission Date: 20061013
  Serious: Yes (Other)
  Sender: FDA-Public Use
  Company Number: None

PATIENT
  Sex: Female
  Weight: 73.9363 kg

DRUGS (5)
  1. AVELOX [Suspect]
     Indication: OTITIS MEDIA
     Dosage: ONE PILL OF 400 MG ONCE PER DAY PO
     Route: 048
     Dates: start: 20060309, end: 20060322
  2. AVELOX [Suspect]
     Indication: OTITIS MEDIA
     Dosage: ONE PILL OF 400 MG ONCE PER DAY PO
     Route: 048
     Dates: start: 20060330, end: 20060405
  3. PREDNISONE [Concomitant]
  4. FLOXIN [Concomitant]
  5. CIPRODEX [Concomitant]

REACTIONS (3)
  - DRUG EXPOSURE DURING PREGNANCY [None]
  - INTRA-UTERINE DEATH [None]
  - PREGNANCY [None]
